FAERS Safety Report 20673836 (Version 1)
Quarter: 2022Q2

REPORT INFORMATION
  Report Type: Spontaneous
  Country: US (occurrence: None)
  Receive Date: 20220404
  Receipt Date: 20220404
  Transmission Date: 20220721
  Serious: Yes (Death, Life-Threatening, Disabling, Other)
  Sender: FDA-Public Use
  Company Number: None

PATIENT
  Age: 79 Year
  Sex: Male
  Weight: 85.5 kg

DRUGS (1)
  1. PHENYLEPHRINE [Suspect]
     Active Substance: PHENYLEPHRINE HYDROCHLORIDE
     Indication: Anaesthesia procedure
     Dosage: OTHER FREQUENCY : DURING SURGERY;?
     Route: 042
     Dates: start: 20210402, end: 20210402

REACTIONS (7)
  - Postoperative delirium [None]
  - Hypotension [None]
  - Pneumonia aspiration [None]
  - Product administered to patient of inappropriate age [None]
  - Anaesthetic complication [None]
  - Coagulopathy [None]
  - Disability [None]

NARRATIVE: CASE EVENT DATE: 20210402
